FAERS Safety Report 22343370 (Version 1)
Quarter: 2023Q2

REPORT INFORMATION
  Report Type: Report from Study
  Country: US (occurrence: US)
  Receive Date: 20230519
  Receipt Date: 20230519
  Transmission Date: 20230722
  Serious: Yes (Hospitalization)
  Sender: FDA-Public Use
  Company Number: US-ABBVIE-4769367

PATIENT
  Sex: Female

DRUGS (1)
  1. SKYRIZI [Suspect]
     Active Substance: RISANKIZUMAB-RZAA
     Indication: Psoriasis
     Route: 058

REACTIONS (6)
  - Hereditary disorder [Unknown]
  - Thyroid disorder [Unknown]
  - Psoriasis [Unknown]
  - Weight decreased [Unknown]
  - Stress [Unknown]
  - Blood glucose increased [Unknown]
